FAERS Safety Report 25932120 (Version 1)
Quarter: 2025Q4

REPORT INFORMATION
  Report Type: Spontaneous
  Country: US (occurrence: US)
  Receive Date: 20251016
  Receipt Date: 20251016
  Transmission Date: 20260117
  Serious: Yes (Other)
  Sender: SANDOZ
  Company Number: US-NOVPHSZ-PHHY2017US121659

PATIENT
  Age: 61 Year
  Sex: Male

DRUGS (2)
  1. MYCOPHENOLATE MOFETIL [Suspect]
     Active Substance: MYCOPHENOLATE MOFETIL
     Indication: Cardiac sarcoidosis
     Dosage: 100 OT, BID
     Route: 065
  2. PREDNISONE [Suspect]
     Active Substance: PREDNISONE
     Indication: Cardiac sarcoidosis
     Dosage: 5 MG, QD
     Route: 065

REACTIONS (2)
  - Cardiac failure [Recovering/Resolving]
  - Condition aggravated [Recovering/Resolving]
